FAERS Safety Report 21016817 (Version 1)
Quarter: 2022Q2

REPORT INFORMATION
  Report Type: Report from Study
  Country: FR (occurrence: FR)
  Receive Date: 20220628
  Receipt Date: 20220628
  Transmission Date: 20220721
  Serious: Yes (Death, Other)
  Sender: FDA-Public Use
  Company Number: FR-MYLANLABS-2022M1048320

PATIENT
  Age: 50 Year
  Sex: Female

DRUGS (2)
  1. CARBOPLATIN [Suspect]
     Active Substance: CARBOPLATIN
     Indication: Non-small cell lung cancer
     Dosage: UNK, CYCLE (FIRST LINE CHEMOTHERAPY; THREE CYCLES)
     Route: 065
     Dates: start: 2019
  2. PEMETREXED [Suspect]
     Active Substance: PEMETREXED
     Indication: Non-small cell lung cancer
     Dosage: UNK, CYCLE (FIRST LINE CHEMOTHERAPY; THREE CYCLES)
     Route: 065
     Dates: start: 2019

REACTIONS (2)
  - Death [Fatal]
  - Drug ineffective [Unknown]
